FAERS Safety Report 5714352-3 (Version None)
Quarter: 2008Q2

REPORT INFORMATION
  Report Type: 
  Country: None (occurrence: None)
  Receive Date: 20080423
  Receipt Date: 20080414
  Transmission Date: 20081010
  Serious: Yes (Hospitalization, Other)
  Sender: FDA-Public Use
  Company Number: GB-JNJFOC-20071202735

PATIENT
  Sex: Female
  Weight: 48 kg

DRUGS (14)
  1. REMICADE [Suspect]
     Route: 042
  2. REMICADE [Suspect]
     Indication: RHEUMATOID ARTHRITIS
     Route: 042
  3. METHOTREXATE [Concomitant]
  4. ASPIRIN [Concomitant]
  5. ATENOLOL [Concomitant]
  6. CLOPIDOGREL [Concomitant]
  7. FOLIC ACID [Concomitant]
  8. GTN SPRAY [Concomitant]
  9. LANSOPRAZOLE [Concomitant]
  10. LISINOPRIL [Concomitant]
  11. PLAQUENIL [Concomitant]
  12. PRAVASTATIN [Concomitant]
  13. RISEDRONATE SODIUM [Concomitant]
  14. ISMIN [Concomitant]

REACTIONS (1)
  - JOINT DISLOCATION [None]
